FAERS Safety Report 7540306-0 (Version None)
Quarter: 2011Q2

REPORT INFORMATION
  Report Type: 
  Country: None (occurrence: None)
  Receive Date: 20110610
  Receipt Date: 20110603
  Transmission Date: 20111010
  Serious: Yes (Hospitalization, Other)
  Sender: FDA-Public Use
  Company Number: JP-CEPHALON-2011002925

PATIENT
  Sex: Female
  Weight: 63 kg

DRUGS (18)
  1. ERYTHROMYCIN ETHYLSUCCINATE [Concomitant]
  2. PYRIDOSTIGMINE BROMIDE [Concomitant]
  3. BENDAMUSTINE HCL [Suspect]
     Indication: B-CELL SMALL LYMPHOCYTIC LYMPHOMA
     Route: 041
     Dates: start: 20110113
  4. DIMETICONE [Concomitant]
  5. METENOLONE ACETATE [Concomitant]
  6. ALLOPURINOL [Concomitant]
  7. SULFAMETHOXAZOLE AND TRIMETHOPRIM [Concomitant]
  8. THEOPHYLLINE [Concomitant]
  9. LANSOPRAZOLE [Concomitant]
  10. LEVOMEPROMAZINE MALEATE [Concomitant]
  11. PREDNISOLONE SODIUM SUCCINATE INJ [Concomitant]
  12. LITHIUM CARBONATE [Concomitant]
  13. AMITRIPTYLINE HCL [Concomitant]
  14. MONTELUKAST SODIUM [Concomitant]
  15. FLUVOXAMINE MALEATE [Concomitant]
  16. MILNACIPRAN HYDROCHLORIDE [Concomitant]
  17. TEPRENONE [Concomitant]
  18. UBIDECARENONE [Concomitant]

REACTIONS (4)
  - ANAEMIA [None]
  - ATYPICAL MYCOBACTERIAL INFECTION [None]
  - NEUTROPHIL COUNT DECREASED [None]
  - PLATELET COUNT DECREASED [None]
